FAERS Safety Report 4552655-9 (Version None)
Quarter: 2005Q1

REPORT INFORMATION
  Report Type: 
  Country: None (occurrence: None)
  Receive Date: 20050114
  Receipt Date: 20050105
  Transmission Date: 20050727
  Serious: Yes (Other)
  Sender: FDA-Public Use
  Company Number: PHBS2005JP00663

PATIENT
  Age: 28 Year
  Sex: Female

DRUGS (3)
  1. VALPROATE SODIUM [Suspect]
  2. DIAZEPAM [Suspect]
     Route: 065
  3. CARBAMAZEPINE [Suspect]
     Indication: SIMPLE PARTIAL SEIZURES
     Route: 065

REACTIONS (4)
  - ABORTION THREATENED [None]
  - DRUG EXPOSURE DURING PREGNANCY [None]
  - NORMAL NEWBORN [None]
  - PREMATURE RUPTURE OF MEMBRANES [None]
